FAERS Safety Report 25057717 (Version 1)
Quarter: 2025Q1

REPORT INFORMATION
  Report Type: Spontaneous
  Country: US (occurrence: US)
  Receive Date: 20250310
  Receipt Date: 20250310
  Transmission Date: 20250408
  Serious: No
  Sender: ELI LILLY AND COMPANY
  Company Number: US-ELI_LILLY_AND_COMPANY-US202502002311

PATIENT
  Age: 23 Year
  Sex: Female

DRUGS (2)
  1. VERZENIO [Suspect]
     Active Substance: ABEMACICLIB
     Indication: Malignant glioma
     Route: 065
     Dates: start: 20250201, end: 20250212
  2. VERZENIO [Suspect]
     Active Substance: ABEMACICLIB
     Route: 048

REACTIONS (4)
  - Drug intolerance [Unknown]
  - Poor quality product administered [Unknown]
  - Off label use [Unknown]
  - Thrombocytopenia [Unknown]
